FAERS Safety Report 10848368 (Version 1)
Quarter: 2015Q1

REPORT INFORMATION
  Report Type: Spontaneous
  Country: US (occurrence: US)
  Receive Date: 20150220
  Receipt Date: 20150220
  Transmission Date: 20150721
  Serious: No
  Sender: FDA-Public Use
  Company Number: US-ALLERGAN-1412562US

PATIENT
  Sex: Female

DRUGS (2)
  1. FML [Suspect]
     Active Substance: FLUOROMETHOLONE
     Indication: EYE INFLAMMATION
     Dosage: UNK, TID
     Route: 047
     Dates: start: 20140527
  2. FML [Suspect]
     Active Substance: FLUOROMETHOLONE
     Indication: OCULAR HYPERAEMIA

REACTIONS (2)
  - Abnormal sensation in eye [Unknown]
  - Ocular discomfort [Unknown]

NARRATIVE: CASE EVENT DATE: 20140531
